FAERS Safety Report 19417296 (Version 1)
Quarter: 2021Q2

REPORT INFORMATION
  Report Type: Spontaneous
  Country: US (occurrence: US)
  Receive Date: 20210614
  Receipt Date: 20210614
  Transmission Date: 20210717
  Serious: No
  Sender: FDA-Public Use
  Company Number: None

PATIENT
  Age: 58 Year
  Sex: Male

DRUGS (2)
  1. GABAPENTIN (GABAPENTIN 300MG CAP) [Suspect]
     Active Substance: GABAPENTIN
     Route: 048
     Dates: start: 20200717, end: 20201007
  2. GABAPENTIN (GABAPENTIN 100MG CAP) [Suspect]
     Active Substance: GABAPENTIN
     Indication: PAIN
     Route: 048
     Dates: start: 20200717, end: 20201007

REACTIONS (6)
  - Dysphoria [None]
  - Headache [None]
  - Memory impairment [None]
  - Suicidal ideation [None]
  - Confusional state [None]
  - Agitation [None]

NARRATIVE: CASE EVENT DATE: 20201008
